FAERS Safety Report 13461078 (Version 1)
Quarter: 2017Q2

REPORT INFORMATION
  Report Type: Spontaneous
  Country: US (occurrence: US)
  Receive Date: 20170419
  Receipt Date: 20170419
  Transmission Date: 20170830
  Serious: No
  Sender: FDA-Public Use
  Company Number: None

PATIENT
  Age: 51 Year
  Sex: Female
  Weight: 62.1 kg

DRUGS (4)
  1. FLUOXETINE [Suspect]
     Active Substance: FLUOXETINE HYDROCHLORIDE
     Indication: DEPRESSION
     Dosage: ?          QUANTITY:180 CAPSULE(S);?
     Route: 048
  2. PROPANOLOL [Concomitant]
     Active Substance: PROPRANOLOL HYDROCHLORIDE
  3. BUPROPION. [Concomitant]
     Active Substance: BUPROPION
  4. TRILEPTAL [Concomitant]
     Active Substance: OXCARBAZEPINE

REACTIONS (4)
  - Throat irritation [None]
  - Foreign body [None]
  - Sensory disturbance [None]
  - Product taste abnormal [None]

NARRATIVE: CASE EVENT DATE: 20170401
